FAERS Safety Report 24653073 (Version 8)
Quarter: 2025Q4

REPORT INFORMATION
  Report Type: Report from Study
  Country: US (occurrence: US)
  Receive Date: 20241122
  Receipt Date: 20251221
  Transmission Date: 20260117
  Serious: No
  Sender: PFIZER
  Company Number: US-PFIZER INC-202400305343

PATIENT
  Age: 75 Year
  Sex: Male

DRUGS (5)
  1. BRAFTOVI [Suspect]
     Active Substance: ENCORAFENIB
     Indication: Brain neoplasm malignant
     Dosage: 450 MG, DAILY (6 CAPSULES DAILY)
     Route: 048
  2. BRAFTOVI [Suspect]
     Active Substance: ENCORAFENIB
     Indication: Brain neoplasm
     Dosage: 900 MG, DAILY (TAKE 12 TABS DAILY (900 MG) 360 EACH MONTH)
     Route: 048
  3. BRAFTOVI [Suspect]
     Active Substance: ENCORAFENIB
     Dosage: 450 MG, 2X/DAY (TAKE 6 CAPSULES (450 MG TOTAL))
     Route: 048
  4. MEKTOVI [Suspect]
     Active Substance: BINIMETINIB
     Indication: Brain neoplasm malignant
     Dosage: 45 MG, 2X/DAY (3 TABLETS (45 MG) TWICE DAILY)
     Route: 048
  5. MEKTOVI [Suspect]
     Active Substance: BINIMETINIB
     Indication: Brain neoplasm

REACTIONS (3)
  - Renal disorder [Recovered/Resolved]
  - Drug effective for unapproved indication [Unknown]
  - Off label use [Unknown]
